FAERS Safety Report 8890496 (Version 1)
Quarter: 2012Q4

REPORT INFORMATION
  Report Type: 
  Country: US (occurrence: US)
  Receive Date: 20121107
  Receipt Date: 20121107
  Transmission Date: 20130627
  Serious: No
  Sender: FDA-Public Use
  Company Number: US-009507513-1211USA002131

PATIENT
  Sex: Male

DRUGS (1)
  1. PEGINTRON [Suspect]
     Indication: HEPATITIS C
     Dosage: 120 Microgram, 4 SYR
     Route: 058
     Dates: start: 20120601, end: 20121024

REACTIONS (3)
  - Nutritional condition abnormal [Unknown]
  - Memory impairment [Unknown]
  - Dry skin [Unknown]
